FAERS Safety Report 8072849-8 (Version None)
Quarter: 2012Q1

REPORT INFORMATION
  Report Type: 
  Country: None (occurrence: None)
  Receive Date: 20120126
  Receipt Date: 20120119
  Transmission Date: 20120608
  Serious: Yes (Other)
  Sender: FDA-Public Use
  Company Number: US-PFIZER INC-2012015409

PATIENT
  Sex: Female

DRUGS (13)
  1. LEXAPRO [Suspect]
     Indication: DEPRESSIVE SYMPTOM
     Dosage: UNK
  2. FISH OIL [Concomitant]
     Dosage: UNK
  3. LAMICTAL [Suspect]
     Indication: BIPOLAR II DISORDER
     Dosage: 300 MG, UNK
     Route: 048
  4. LAMOTRIGINE [Suspect]
     Indication: BIPOLAR II DISORDER
     Dosage: 300 MG, UNK
     Route: 048
  5. NORTRIPTYLINE [Concomitant]
     Dosage: UNK
  6. WELLBUTRIN [Suspect]
     Indication: DEPRESSIVE SYMPTOM
     Dosage: UNK
     Route: 048
  7. LIPITOR [Concomitant]
     Dosage: UNK
     Dates: end: 20080101
  8. EFFEXOR [Suspect]
     Indication: DEPRESSIVE SYMPTOM
     Dosage: UNK
  9. TRILEPTAL [Concomitant]
     Dosage: UNK
  10. MULTI-VITAMINS [Concomitant]
     Dosage: UNK
  11. GEODON [Suspect]
     Dosage: UNK
  12. MICROGESTIN 1.5/30 [Suspect]
     Indication: CONTRACEPTION
     Dosage: UNK
  13. MULTI-VITAMINS [Concomitant]
     Dosage: UNK

REACTIONS (11)
  - STRESS [None]
  - OVERDOSE [None]
  - DRUG LEVEL DECREASED [None]
  - ACTIVITIES OF DAILY LIVING IMPAIRED [None]
  - DISABILITY [None]
  - BEDRIDDEN [None]
  - HYPERSOMNIA [None]
  - DEPRESSED MOOD [None]
  - ABORTION SPONTANEOUS [None]
  - DEPRESSION [None]
  - DISTURBANCE IN ATTENTION [None]
